FAERS Safety Report 12384432 (Version 1)
Quarter: 2016Q2

REPORT INFORMATION
  Report Type: Other
  Country: GB (occurrence: GB)
  Receive Date: 20160519
  Receipt Date: 20160519
  Transmission Date: 20160815
  Serious: Yes (Congenital Anomaly)
  Sender: FDA-Public Use
  Company Number: GB-MYLANLABS-2016M1019734

PATIENT

DRUGS (3)
  1. ISOTRETINOIN [Suspect]
     Active Substance: ISOTRETINOIN
     Indication: ACNE
     Dosage: 40 MG, QD
     Route: 064
     Dates: start: 20151203, end: 20151216
  2. MICROGYNON                         /00022701/ [Concomitant]
     Active Substance: ETHINYL ESTRADIOL\LEVONORGESTREL ACETATE
     Indication: CONTRACEPTION
     Dosage: UNK
  3. ISOTRETINOIN [Suspect]
     Active Substance: ISOTRETINOIN
     Dosage: 30 MG, QD
     Route: 064
     Dates: start: 20151001

REACTIONS (2)
  - Foetal exposure during pregnancy [Unknown]
  - DiGeorge^s syndrome [Not Recovered/Not Resolved]
